FAERS Safety Report 4518072-2 (Version None)
Quarter: 2004Q4

REPORT INFORMATION
  Report Type: 
  Country: None (occurrence: None)
  Receive Date: 20041203
  Receipt Date: 20041108
  Transmission Date: 20050328
  Serious: Yes (Hospitalization)
  Sender: FDA-Public Use
  Company Number: MCA/KP/074

PATIENT
  Age: 60 Year
  Sex: Female

DRUGS (3)
  1. NABUCOX [Suspect]
     Indication: ILL-DEFINED DISORDER
     Route: 048
     Dates: start: 20040719
  2. PLAVIX [Concomitant]
  3. TAHOR [Concomitant]

REACTIONS (2)
  - BLOOD PRESSURE SYSTOLIC INCREASED [None]
  - SYNCOPE VASOVAGAL [None]
